FAERS Safety Report 7864615-0 (Version None)
Quarter: 2011Q4

REPORT INFORMATION
  Report Type: 
  Country: None (occurrence: None)
  Receive Date: 20111026
  Receipt Date: 20111013
  Transmission Date: 20120403
  Serious: Yes (Other)
  Sender: FDA-Public Use
  Company Number: 2011MA015263

PATIENT
  Age: 76 Year
  Sex: Male

DRUGS (1)
  1. SPIRONOLACTONE [Suspect]
     Indication: CARDIAC DISORDER
     Dosage: 25 MG;QD

REACTIONS (4)
  - MALAISE [None]
  - DYSPNOEA [None]
  - HYPOTENSION [None]
  - BACK PAIN [None]
